FAERS Safety Report 18968738 (Version 5)
Quarter: 2021Q2

REPORT INFORMATION
  Report Type: Spontaneous
  Country: US (occurrence: US)
  Receive Date: 20210304
  Receipt Date: 20210401
  Transmission Date: 20210717
  Serious: No
  Sender: FDA-Public Use
  Company Number: US-SA-2021SA062902

PATIENT
  Age: 60 Year
  Sex: Female

DRUGS (1)
  1. LANTUS SOLOSTAR [Suspect]
     Active Substance: INSULIN GLARGINE
     Indication: TYPE 1 DIABETES MELLITUS
     Dosage: 24 UNITS ONCE DAILY
     Route: 065

REACTIONS (3)
  - Device leakage [Unknown]
  - Visual impairment [Unknown]
  - Blood glucose increased [Unknown]
